FAERS Safety Report 15940776 (Version 2)
Quarter: 2019Q1

REPORT INFORMATION
  Report Type: Spontaneous
  Country: US (occurrence: US)
  Receive Date: 20190208
  Receipt Date: 20190313
  Transmission Date: 20190417
  Serious: Yes (Life-Threatening)
  Sender: FDA-Public Use
  Company Number: US-BAUSCH-BL-2018-034458

PATIENT
  Sex: Female
  Weight: 83.99 kg

DRUGS (3)
  1. OCEAN SALINE NASAL SPRAY [Suspect]
     Active Substance: SODIUM CHLORIDE
     Dosage: RESTARTED
     Route: 045
     Dates: end: 201810
  2. OCEAN SALINE NASAL SPRAY [Suspect]
     Active Substance: SODIUM CHLORIDE
     Indication: PRODUCT USED FOR UNKNOWN INDICATION
     Dosage: FREQUENY: TWICE IN EACH NOSTRIL (3-5 WEEK)
     Route: 045
     Dates: start: 201704, end: 2017
  3. OCEAN SALINE NASAL SPRAY [Concomitant]
     Active Substance: SODIUM CHLORIDE
     Indication: PRODUCT USED FOR UNKNOWN INDICATION
     Dosage: BUDDY PACK (1.5 FL OZ AND 0.76 FL OZ (FLUID OUNCE)

REACTIONS (4)
  - Recalled product administered [Unknown]
  - Asthma [Recovering/Resolving]
  - Product contamination [Unknown]
  - Product label issue [Unknown]
